FAERS Safety Report 22588414 (Version 1)
Quarter: 2023Q2

REPORT INFORMATION
  Report Type: Other
  Country: None (occurrence: KR)
  Receive Date: 20230612
  Receipt Date: 20230612
  Transmission Date: 20230722
  Serious: Yes (Life-Threatening)
  Sender: FDA-Public Use
  Company Number: KR-B.Braun Medical Inc.-2142571

PATIENT
  Age: 70 Year
  Sex: Female

DRUGS (4)
  1. SODIUM CHLORIDE [Suspect]
     Active Substance: SODIUM CHLORIDE
     Indication: Hypotension
     Route: 042
  2. DOPAMINE [Suspect]
     Active Substance: DOPAMINE HYDROCHLORIDE
  3. NOREPINEPHRINE [Suspect]
     Active Substance: NOREPINEPHRINE
  4. EPINEPHRINE [Suspect]
     Active Substance: EPINEPHRINE

REACTIONS (1)
  - Drug ineffective [Unknown]
